FAERS Safety Report 9137607 (Version 2)
Quarter: 2013Q2

REPORT INFORMATION
  Report Type: Spontaneous
  Country: US (occurrence: US)
  Receive Date: 20130304
  Receipt Date: 20130509
  Transmission Date: 20140414
  Serious: No
  Sender: FDA-Public Use
  Company Number: US-009507513-1302USA009249

PATIENT
  Age: 88 Year
  Sex: Female

DRUGS (8)
  1. ZIOPTAN [Suspect]
     Indication: OPEN ANGLE GLAUCOMA
     Dosage: TAKEN ONE DROP IN EACH EYE AT BEDTIME
     Route: 047
     Dates: start: 201302
  2. AMLODIPINE [Concomitant]
  3. ORA-LUTIN [Concomitant]
  4. FLAXSEED [Concomitant]
  5. VITAMINS (UNSPECIFIED) [Concomitant]
  6. OMEPRAZOLE [Concomitant]
  7. ASCORBIC ACID [Concomitant]
  8. ASPIRIN [Concomitant]

REACTIONS (9)
  - Dyspnoea [Unknown]
  - Chest discomfort [Unknown]
  - Lip swelling [Unknown]
  - Vision blurred [Unknown]
  - Nasopharyngitis [Unknown]
  - Urinary tract infection [Unknown]
  - Cough [Unknown]
  - Dry eye [Unknown]
  - Therapeutic response delayed [Unknown]
